FAERS Safety Report 17654772 (Version 1)
Quarter: 2020Q2

REPORT INFORMATION
  Report Type: Spontaneous
  Country: US (occurrence: US)
  Receive Date: 20200410
  Receipt Date: 20200410
  Transmission Date: 20200713
  Serious: No
  Sender: FDA-Public Use
  Company Number: US-TEVA-2020-US-1221333

PATIENT

DRUGS (1)
  1. NUVIGIL [Suspect]
     Active Substance: ARMODAFINIL
     Route: 065
     Dates: end: 20200228

REACTIONS (3)
  - Glossodynia [Recovered/Resolved]
  - Oral pain [Not Recovered/Not Resolved]
  - Swollen tongue [Unknown]
